FAERS Safety Report 18413944 (Version 6)
Quarter: 2021Q1

REPORT INFORMATION
  Report Type: Report from Study
  Country: BR (occurrence: BR)
  Receive Date: 20201022
  Receipt Date: 20210129
  Transmission Date: 20210419
  Serious: Yes (Disabling, Other)
  Sender: FDA-Public Use
  Company Number: NVSC2020BR274692

PATIENT
  Age: 53 Year
  Sex: Female
  Weight: 88 kg

DRUGS (14)
  1. COSENTYX [Suspect]
     Active Substance: SECUKINUMAB
     Indication: ARTHRITIS
     Dosage: UNK UNK, QMO
     Route: 065
     Dates: start: 20201002
  2. COSENTYX [Suspect]
     Active Substance: SECUKINUMAB
     Dosage: UNK
     Route: 065
     Dates: start: 20201213
  3. PREGABALIN. [Suspect]
     Active Substance: PREGABALIN
     Indication: PRODUCT USED FOR UNKNOWN INDICATION
     Dosage: UNK
     Route: 065
     Dates: start: 20201014
  4. DILTIAZEM. [Concomitant]
     Active Substance: DILTIAZEM
     Indication: HYPERTENSION
     Dosage: 6 DF, QD
     Route: 048
     Dates: start: 2019
  5. OLMESARTAN [Concomitant]
     Active Substance: OLMESARTAN
     Indication: HYPERTENSION
     Dosage: 1 DF, QD
     Route: 048
     Dates: start: 2019
  6. TORSILAX [Suspect]
     Active Substance: ACETAMINOPHEN\CAFFEINE\CARISOPRODOL\DICLOFENAC
     Indication: PAIN
     Dosage: UNK, Q12H (1 OR 2 TIMES A WEEK)
     Route: 065
  7. NAPROXENO [Suspect]
     Active Substance: NAPROXEN
     Indication: PAIN
     Dosage: UNK
     Route: 065
  8. ISOSORBIDE. [Concomitant]
     Active Substance: ISOSORBIDE
     Indication: HYPERTENSION
     Dosage: 2 DF, TID
     Route: 048
     Dates: start: 2019
  9. ATENSINA [Concomitant]
     Active Substance: CLONIDINE
     Indication: HYPERTENSION
     Dosage: 1 DF, TID
     Route: 048
     Dates: start: 2010
  10. SULFASALAZINA [Concomitant]
     Active Substance: SULFASALAZINE
     Indication: HYPERTENSION
     Dosage: 1 DF, QD (STARTED IN JULY 2020 OR AUG 2020)
     Route: 048
  11. NORFLOXACINA [Concomitant]
     Active Substance: NORFLOXACIN
     Indication: URINARY TRACT INFECTION
     Dosage: 1 DF, Q12H (STOPPED AFTER 5 DAYS)
     Route: 048
     Dates: start: 202009
  12. COSENTYX [Suspect]
     Active Substance: SECUKINUMAB
     Indication: ANKYLOSING SPONDYLITIS
     Dosage: 150 MG, QMO
     Route: 058
     Dates: start: 20200905
  13. COSENTYX [Suspect]
     Active Substance: SECUKINUMAB
     Indication: SPONDYLITIS
     Dosage: UNK
     Route: 065
     Dates: start: 20201013
  14. PURAN [Concomitant]
     Active Substance: LEVOTHYROXINE SODIUM
     Indication: AUTOIMMUNE THYROIDITIS
     Dosage: 1 DF, QD
     Route: 048
     Dates: start: 2010

REACTIONS (29)
  - Joint swelling [Not Recovered/Not Resolved]
  - Headache [Recovering/Resolving]
  - Temperature intolerance [Unknown]
  - Fibromyalgia [Recovering/Resolving]
  - Arthritis [Not Recovered/Not Resolved]
  - Joint stiffness [Not Recovered/Not Resolved]
  - Erythema [Recovering/Resolving]
  - Muscular weakness [Not Recovered/Not Resolved]
  - Inflammation [Recovering/Resolving]
  - Peripheral swelling [Unknown]
  - Dysstasia [Not Recovered/Not Resolved]
  - Therapeutic product effect delayed [Unknown]
  - Product availability issue [Unknown]
  - Burning sensation [Recovering/Resolving]
  - Injection site swelling [Recovering/Resolving]
  - Product use in unapproved indication [Unknown]
  - Renal disorder [Unknown]
  - Arthralgia [Recovering/Resolving]
  - Constipation [Recovering/Resolving]
  - Eye pruritus [Unknown]
  - Gait inability [Recovering/Resolving]
  - Spondylitis [Recovering/Resolving]
  - Rheumatoid arthritis [Not Recovered/Not Resolved]
  - Drug ineffective [Recovering/Resolving]
  - Tendonitis [Recovering/Resolving]
  - Pain [Recovering/Resolving]
  - Sensitivity to weather change [Unknown]
  - Fatigue [Unknown]
  - Joint warmth [Recovered/Resolved]

NARRATIVE: CASE EVENT DATE: 20200905
